FAERS Safety Report 4615217-0 (Version None)
Quarter: 2005Q1

REPORT INFORMATION
  Report Type: 
  Country: None (occurrence: None)
  Receive Date: 20050310
  Receipt Date: 20040917
  Transmission Date: 20050727
  Serious: Yes (Other)
  Sender: FDA-Public Use
  Company Number: 200510229BBE

PATIENT
  Sex: Male

DRUGS (3)
  1. KONYNE [Suspect]
     Indication: FACTOR IX DEFICIENCY
     Dates: start: 19830101
  2. PROPLEX [Suspect]
     Dates: start: 19840101
  3. HYLAND (FACTOR IX) (FACTOR IX) [Suspect]
     Dates: start: 19840101, end: 19850101

REACTIONS (2)
  - HEPATITIS B VIRUS [None]
  - HEPATITIS C VIRUS [None]
